FAERS Safety Report 5595365-1 (Version None)
Quarter: 2008Q1

REPORT INFORMATION
  Report Type: 
  Country: None (occurrence: None)
  Receive Date: 20080117
  Receipt Date: 20080109
  Transmission Date: 20080703
  Serious: Yes (Death)
  Sender: FDA-Public Use
  Company Number: US-PFIZER INC-2008003226

PATIENT
  Age: 56 Year
  Sex: Male

DRUGS (4)
  1. NIFEDIPINE [Suspect]
  2. GLIPIZIDE [Suspect]
  3. DIAZEPAM [Suspect]
  4. PROPRANOLOL [Suspect]

REACTIONS (2)
  - CARDIO-RESPIRATORY ARREST [None]
  - COMPLETED SUICIDE [None]
